FAERS Safety Report 8007672-3 (Version None)
Quarter: 2011Q4

REPORT INFORMATION
  Report Type: 
  Country: None (occurrence: None)
  Receive Date: 20111227
  Receipt Date: 20110920
  Transmission Date: 20120403
  Serious: No
  Sender: FDA-Public Use
  Company Number: US-ABBOTT-11P-163-0856707-00

PATIENT
  Age: 81 Year
  Sex: Male

DRUGS (2)
  1. LUPRON DEPOT [Suspect]
     Dates: start: 20110101
  2. LUPRON DEPOT [Suspect]
     Indication: PROSTATE CANCER
     Dates: start: 20000101, end: 20070101

REACTIONS (1)
  - PROSTATIC SPECIFIC ANTIGEN INCREASED [None]
